FAERS Safety Report 7413621-9 (Version None)
Quarter: 2011Q2

REPORT INFORMATION
  Report Type: 
  Country: None (occurrence: None)
  Receive Date: 20110413
  Receipt Date: 20110222
  Transmission Date: 20111010
  Serious: Yes (Death)
  Sender: FDA-Public Use
  Company Number: US-BAXTER-2011BH010355

PATIENT
  Sex: Male

DRUGS (1)
  1. FEIBA VH [Suspect]
     Indication: PROPHYLAXIS
     Route: 042

REACTIONS (1)
  - HAEMORRHAGE INTRACRANIAL [None]
